FAERS Safety Report 16634502 (Version 3)
Quarter: 2019Q3

REPORT INFORMATION
  Report Type: Spontaneous
  Country: US (occurrence: US)
  Receive Date: 20190726
  Receipt Date: 20190906
  Transmission Date: 20191004
  Serious: No
  Sender: FDA-Public Use
  Company Number: US-ASTRAZENECA-2019SE95855

PATIENT
  Age: 64 Year
  Sex: Female
  Weight: 89.4 kg

DRUGS (3)
  1. SYMBICORT [Suspect]
     Active Substance: BUDESONIDE\FORMOTEROL FUMARATE DIHYDRATE
     Indication: CHRONIC OBSTRUCTIVE PULMONARY DISEASE
     Dosage: 80/4.5 MCG TWO INHALATIONS, TWICE DAILY
     Route: 055
     Dates: start: 2018
  2. SYMBICORT [Suspect]
     Active Substance: BUDESONIDE\FORMOTEROL FUMARATE DIHYDRATE
     Indication: CHRONIC OBSTRUCTIVE PULMONARY DISEASE
     Dosage: 160/4.5 MCG UNKNOWN UNKNOWN
     Route: 055
     Dates: start: 2018
  3. BEVESPI AEROSPHERE [Suspect]
     Active Substance: FORMOTEROL FUMARATE\GLYCOPYRROLATE
     Indication: CHRONIC OBSTRUCTIVE PULMONARY DISEASE
     Dosage: 9/4.8 MCG TWO INHALATIONS, TWICE DAILY.
     Route: 055
     Dates: start: 2016

REACTIONS (11)
  - Circumstance or information capable of leading to medication error [Unknown]
  - Feeling abnormal [Recovered/Resolved]
  - Confusional state [Unknown]
  - Feeling jittery [Recovered/Resolved]
  - Intentional device misuse [Not Recovered/Not Resolved]
  - Blood glucose increased [Recovered/Resolved]
  - Product dispensing error [Not Recovered/Not Resolved]
  - Device issue [Unknown]
  - Condition aggravated [Recovered/Resolved]
  - Intentional product misuse [Recovered/Resolved]
  - Device malfunction [Unknown]

NARRATIVE: CASE EVENT DATE: 2018
